FAERS Safety Report 8356143-3 (Version None)
Quarter: 2012Q2

REPORT INFORMATION
  Report Type: 
  Country: None (occurrence: None)
  Receive Date: 20120510
  Receipt Date: 20120504
  Transmission Date: 20120825
  Serious: Yes (Hospitalization, Other)
  Sender: FDA-Public Use
  Company Number: GER/GER/12/0024212

PATIENT
  Age: 34 Year
  Sex: Female
  Weight: 65 kg

DRUGS (1)
  1. CITALOPRAM HYDROBROMIDE [Suspect]
     Indication: DEPRESSION
     Dosage: 30 MG, 1 IN 1 D, ORAL
     Route: 048
     Dates: end: 20111017

REACTIONS (6)
  - HAEMORRHAGE IN PREGNANCY [None]
  - ABORTION INDUCED [None]
  - MATERNAL EXPOSURE DURING PREGNANCY [None]
  - ACUTE TONSILLITIS [None]
  - FOETAL DEATH [None]
  - CHORIOAMNIONITIS [None]
